FAERS Safety Report 5624347-6 (Version None)
Quarter: 2008Q1

REPORT INFORMATION
  Report Type: 
  Country: None (occurrence: None)
  Receive Date: 20080213
  Receipt Date: 20080116
  Transmission Date: 20080703
  Serious: No
  Sender: FDA-Public Use
  Company Number: US-BAYER-200811646NA

PATIENT
  Age: 41 Year
  Sex: Female
  Weight: 66 kg

DRUGS (1)
  1. MIRENA [Suspect]
     Indication: CONTRACEPTION
     Route: 015
     Dates: start: 20060108, end: 20071220

REACTIONS (6)
  - ANGER [None]
  - BACK PAIN [None]
  - HEADACHE [None]
  - NAUSEA [None]
  - PREMENSTRUAL SYNDROME [None]
  - VOMITING [None]
